FAERS Safety Report 5832167-2 (Version None)
Quarter: 2008Q3

REPORT INFORMATION
  Report Type: 
  Country: None (occurrence: None)
  Receive Date: 20080731
  Receipt Date: 20080731
  Transmission Date: 20090109
  Serious: Yes (Life-Threatening, Hospitalization, Disabling)
  Sender: FDA-Public Use
  Company Number: None

PATIENT
  Age: 66 Year
  Sex: Male
  Weight: 75.2971 kg

DRUGS (1)
  1. AVELOX [Suspect]
     Indication: BRONCHITIS
     Dosage: ONE [1] PER DAY PO
     Route: 048
     Dates: start: 20080502, end: 20080507

REACTIONS (12)
  - ANOREXIA [None]
  - CONFUSIONAL STATE [None]
  - DIZZINESS [None]
  - GENERAL PHYSICAL HEALTH DETERIORATION [None]
  - LYMPHOMA [None]
  - NAUSEA [None]
  - PERIPHERAL COLDNESS [None]
  - PHOTOPSIA [None]
  - RENAL FAILURE ACUTE [None]
  - RENAL PAIN [None]
  - VERTIGO [None]
  - WEIGHT DECREASED [None]
